FAERS Safety Report 9967316 (Version 2)
Quarter: 2014Q1

REPORT INFORMATION
  Report Type: Report from Study
  Country: US (occurrence: US)
  Receive Date: 20140305
  Receipt Date: 20140305
  Transmission Date: 20141002
  Serious: No
  Sender: FDA-Public Use
  Company Number: US-ABBVIE-13P-163-1123489-00

PATIENT
  Age: 41 Year
  Sex: Female

DRUGS (10)
  1. HUMIRA [Suspect]
     Indication: CROHN^S DISEASE
     Dosage: LOADING DOSE
     Dates: start: 20130718
  2. HUMIRA [Suspect]
     Dates: end: 20130906
  3. HUMIRA [Suspect]
     Dates: start: 20130906
  4. PREDNISONE [Suspect]
     Indication: LUPUS-LIKE SYNDROME
     Dosage: 30 MG DAILY (DRECEASING DOSE 5MG EVERY WEEK)
  5. PREDNISONE [Suspect]
     Dates: start: 20130902
  6. FOLIC ACID [Concomitant]
     Indication: VITAMIN SUPPLEMENTATION
     Dosage: 800 MG DAILY
  7. CALCIUM [Concomitant]
     Indication: MINERAL SUPPLEMENTATION
     Dosage: 1000 MG DAILY
  8. VITAMIN D [Concomitant]
     Indication: VITAMIN D DECREASED
     Dosage: 50000 IU WEEKLY
  9. PROBIOTIC [Concomitant]
     Indication: PRODUCT USED FOR UNKNOWN INDICATION
     Dosage: DAILY
  10. OMEGA 3 [Concomitant]
     Indication: BLOOD CHOLESTEROL
     Dosage: 1000MG DAILY

REACTIONS (16)
  - Faeces discoloured [Unknown]
  - Palpitations [Unknown]
  - Chills [Unknown]
  - Hyperhidrosis [Unknown]
  - Erythema [Unknown]
  - Dyspnoea [Unknown]
  - Dizziness [Unknown]
  - Visual impairment [Unknown]
  - Tinnitus [Unknown]
  - Cough [Not Recovered/Not Resolved]
  - Wheezing [Not Recovered/Not Resolved]
  - Dysphonia [Not Recovered/Not Resolved]
  - Sinus congestion [Not Recovered/Not Resolved]
  - Dyspnoea [Unknown]
  - Abdominal distension [Not Recovered/Not Resolved]
  - Crohn^s disease [Not Recovered/Not Resolved]
